FAERS Safety Report 17422605 (Version 1)
Quarter: 2020Q1

REPORT INFORMATION
  Report Type: Spontaneous
  Country: US (occurrence: US)
  Receive Date: 20200215
  Receipt Date: 20200215
  Transmission Date: 20200409
  Serious: No
  Sender: FDA-Public Use
  Company Number: US-SHIRE-US202005579

PATIENT
  Sex: Female

DRUGS (1)
  1. VPRIV [Suspect]
     Active Substance: VELAGLUCERASE ALFA
     Indication: GAUCHER^S DISEASE
     Dosage: 16 INTERNATIONAL UNIT, 1X/2WKS
     Route: 042
     Dates: start: 20141020

REACTIONS (2)
  - Inability to afford medication [Recovering/Resolving]
  - Malaise [Unknown]
